FAERS Safety Report 15719809 (Version 1)
Quarter: 2018Q4

REPORT INFORMATION
  Report Type: Spontaneous
  Country: SZ (occurrence: CH)
  Receive Date: 20181213
  Receipt Date: 20181213
  Transmission Date: 20190205
  Serious: Yes (Hospitalization)
  Sender: FDA-Public Use
  Company Number: CH-ASTRAZENECA-2018SF59819

PATIENT
  Age: 84 Year
  Sex: Male

DRUGS (18)
  1. AMLODIPINE [Suspect]
     Active Substance: AMLODIPINE BESYLATE
     Dosage: 10.0MG UNKNOWN
     Route: 048
     Dates: start: 20170725, end: 20170725
  2. DIAMICRON [Suspect]
     Active Substance: GLICLAZIDE
     Dosage: 15.0MG UNKNOWN
     Route: 048
     Dates: end: 20170723
  3. SYMBICORT [Concomitant]
     Active Substance: BUDESONIDE\FORMOTEROL FUMARATE DIHYDRATE
     Dates: start: 20170722
  4. NITRODERM [Concomitant]
     Active Substance: NITROGLYCERIN
     Route: 062
  5. CIPROFLOXACIN. [Suspect]
     Active Substance: CIPROFLOXACIN
     Dosage: 1000.0MG UNKNOWN
     Route: 048
     Dates: start: 20170719, end: 20170721
  6. CLEXANE [Suspect]
     Active Substance: ENOXAPARIN SODIUM
     Dosage: 40.0MG UNKNOWN
     Route: 058
     Dates: start: 20170722, end: 20170726
  7. CALCIMAGON D3 [Concomitant]
     Active Substance: CALCIUM\CHOLECALCIFEROL
     Dates: start: 20170722, end: 20170725
  8. ACIDUM FOLICUM [Concomitant]
     Active Substance: FOLIC ACID
     Route: 048
     Dates: start: 20170723, end: 20170727
  9. CEFTRIAXONE. [Suspect]
     Active Substance: CEFTRIAXONE
     Dosage: 2.0G UNKNOWN
     Route: 041
     Dates: start: 20170722, end: 20170724
  10. CONCOR [Suspect]
     Active Substance: BISOPROLOL FUMARATE
     Dosage: 2.5MG UNKNOWN
     Route: 048
     Dates: end: 20170727
  11. SERETIDE [Concomitant]
     Active Substance: FLUTICASONE PROPIONATE\SALMETEROL XINAFOATE
     Dates: start: 20170727
  12. SEROQUEL [Suspect]
     Active Substance: QUETIAPINE FUMARATE
     Dosage: 25.0MG UNKNOWN
     Route: 048
     Dates: end: 20170727
  13. JANUMET [Suspect]
     Active Substance: METFORMIN HYDROCHLORIDE\SITAGLIPTIN PHOSPHATE
     Dosage: 1.0DF UNKNOWN
     Route: 048
     Dates: end: 20170725
  14. INEGY [Suspect]
     Active Substance: EZETIMIBE\SIMVASTATIN
     Route: 048
     Dates: end: 20170719
  15. IPRAMOL [Concomitant]
     Active Substance: ALBUTEROL SULFATE\IPRATROPIUM BROMIDE
  16. LAXOBERON [Concomitant]
     Active Substance: SODIUM PICOSULFATE
  17. INSULIN [Concomitant]
     Active Substance: INSULIN NOS
  18. ASPIRIN CARDIO [Suspect]
     Active Substance: ASPIRIN
     Dosage: 100.0MG UNKNOWN
     Route: 048
     Dates: end: 20170727

REACTIONS (1)
  - Cholestasis [Recovering/Resolving]

NARRATIVE: CASE EVENT DATE: 20170727
